FAERS Safety Report 11504592 (Version 1)
Quarter: 2015Q3

REPORT INFORMATION
  Report Type: Spontaneous
  Country: US (occurrence: US)
  Receive Date: 20150915
  Receipt Date: 20150915
  Transmission Date: 20151125
  Serious: No
  Sender: FDA-Public Use
  Company Number: US-ROCHE-801125

PATIENT
  Sex: Female

DRUGS (7)
  1. RIBAVIRIN. [Suspect]
     Active Substance: RIBAVIRIN
     Indication: HEPATITIS C
     Dosage: DAILY DIVIDED DOSES.
     Route: 065
  2. RIBAVIRIN. [Suspect]
     Active Substance: RIBAVIRIN
     Route: 065
  3. TRAZODONE [Concomitant]
     Active Substance: TRAZODONE HYDROCHLORIDE
     Indication: SCHIZOPHRENIA
     Route: 065
  4. PEGASYS [Suspect]
     Active Substance: PEGINTERFERON ALFA-2A
     Indication: HEPATITIS C
     Route: 065
  5. ROBAXIN [Concomitant]
     Active Substance: METHOCARBAMOL
     Indication: RHEUMATOID ARTHRITIS
     Route: 065
  6. INCIVO [Concomitant]
     Active Substance: TELAPREVIR
     Indication: HEPATITIS C
     Dosage: FOR 24 WEEKS
     Route: 065
  7. METAMUCIL [Concomitant]
     Active Substance: PLANTAGO SEED
     Indication: CONSTIPATION
     Route: 065

REACTIONS (3)
  - Musculoskeletal pain [Unknown]
  - Vomiting [Unknown]
  - Gait disturbance [Unknown]
